FAERS Safety Report 18176462 (Version 1)
Quarter: 2020Q3

REPORT INFORMATION
  Report Type: Spontaneous
  Country: US (occurrence: US)
  Receive Date: 20200820
  Receipt Date: 20200820
  Transmission Date: 20201103
  Serious: Yes (Hospitalization, Other)
  Sender: FDA-Public Use
  Company Number: US-PFIZER INC-2020319564

PATIENT
  Sex: Female

DRUGS (1)
  1. DAURISMO [Suspect]
     Active Substance: GLASDEGIB
     Indication: ACUTE MYELOID LEUKAEMIA REFRACTORY
     Dosage: UNK

REACTIONS (3)
  - Off label use [Unknown]
  - Pulmonary haemorrhage [Unknown]
  - Product use in unapproved indication [Unknown]
